FAERS Safety Report 8045532-2 (Version None)
Quarter: 2012Q1

REPORT INFORMATION
  Report Type: 
  Country: None (occurrence: None)
  Receive Date: 20120113
  Receipt Date: 20120111
  Transmission Date: 20120608
  Serious: Yes (Other)
  Sender: FDA-Public Use
  Company Number: US-ROCHE-793780

PATIENT
  Sex: Male
  Weight: 65.83 kg

DRUGS (2)
  1. ACCUTANE [Suspect]
     Indication: ACNE
  2. ACCUTANE [Suspect]
     Route: 065
     Dates: start: 19990330, end: 19990707

REACTIONS (6)
  - IRRITABLE BOWEL SYNDROME [None]
  - SUICIDAL IDEATION [None]
  - INSOMNIA [None]
  - INFLAMMATORY BOWEL DISEASE [None]
  - DRY SKIN [None]
  - LIP DRY [None]
